FAERS Safety Report 18501292 (Version 1)
Quarter: 2020Q4

REPORT INFORMATION
  Report Type: Spontaneous
  Country: US (occurrence: US)
  Receive Date: 20201113
  Receipt Date: 20201113
  Transmission Date: 20210114
  Serious: Yes (Hospitalization, Other)
  Sender: FDA-Public Use
  Company Number: US-NOVOPROD-765993

PATIENT
  Sex: Female

DRUGS (1)
  1. VICTOZA [Suspect]
     Active Substance: LIRAGLUTIDE
     Indication: PRODUCT USED FOR UNKNOWN INDICATION
     Dosage: UNK
     Route: 065

REACTIONS (7)
  - Limb injury [Unknown]
  - Depression [Unknown]
  - Intentional dose omission [Unknown]
  - Haematocrit decreased [Unknown]
  - Dehydration [Unknown]
  - Hospitalisation [Unknown]
  - Confusional state [Unknown]
